FAERS Safety Report 16440619 (Version 1)
Quarter: 2019Q3

REPORT INFORMATION
  Report Type: Spontaneous
  Country: US (occurrence: US)
  Receive Date: 20190617
  Receipt Date: 20190617
  Transmission Date: 20191004
  Serious: Yes (Other)
  Sender: FDA-Public Use
  Company Number: None

PATIENT
  Age: 77 Year
  Sex: Female
  Weight: 50.85 kg

DRUGS (8)
  1. CEFADROXIL 500 MG [Suspect]
     Active Substance: CEFADROXIL
     Indication: EAR INFECTION STAPHYLOCOCCAL
     Dosage: ?          QUANTITY:28 CAPSULE(S);?
     Route: 048
     Dates: start: 20190612, end: 20190617
  2. PROBIOTICS [Concomitant]
     Active Substance: PROBIOTICS NOS
  3. HYDROXYZINE [Concomitant]
     Active Substance: HYDROXYZINE HYDROCHLORIDE
  4. HYPOTHYROID [Concomitant]
  5. VALIUM [Concomitant]
     Active Substance: DIAZEPAM
  6. MULTIVITAMIN [Concomitant]
     Active Substance: VITAMINS
  7. EINHOM [Concomitant]
  8. SYNTHROID [Concomitant]
     Active Substance: LEVOTHYROXINE SODIUM

REACTIONS (3)
  - Pruritus [None]
  - Insomnia [None]
  - Rash [None]

NARRATIVE: CASE EVENT DATE: 20190612
